FAERS Safety Report 8317749-0 (Version None)
Quarter: 2012Q2

REPORT INFORMATION
  Report Type: 
  Country: None (occurrence: None)
  Receive Date: 20120427
  Receipt Date: 20090714
  Transmission Date: 20120825
  Serious: No
  Sender: FDA-Public Use
  Company Number: US-TEVA-2009008518

PATIENT
  Sex: Male
  Weight: 90.8 kg

DRUGS (5)
  1. PERCOCET [Suspect]
     Route: 048
     Dates: start: 20060101
  2. XANAX [Suspect]
     Dosage: 2 MILLIGRAM;
     Dates: start: 19970101
  3. TRAZODONE HCL [Concomitant]
     Dosage: 300 MILLIGRAM;
     Route: 048
     Dates: start: 19980101
  4. NUVIGIL [Suspect]
     Indication: ASTHENIA
     Dosage: 150 MILLIGRAM;
     Route: 048
     Dates: start: 20090714
  5. MS CONTIN [Suspect]
     Dosage: 120 MILLIGRAM;
     Dates: start: 20060101

REACTIONS (2)
  - SOMNOLENCE [None]
  - POTENTIATING DRUG INTERACTION [None]
